FAERS Safety Report 8285290-X (Version None)
Quarter: 2012Q2

REPORT INFORMATION
  Report Type: 
  Country: None (occurrence: None)
  Receive Date: 20120413
  Receipt Date: 20120330
  Transmission Date: 20120825
  Serious: Yes (Other)
  Sender: FDA-Public Use
  Company Number: CHPA2012US002624

PATIENT
  Sex: Male

DRUGS (2)
  1. EXCEDRIN EXTRA STRENGTH TABLETS [Suspect]
     Indication: PAIN
     Dosage: 4 DF AT A TIME, UP TO 20 DF A DAY
     Route: 048
     Dates: end: 20120101
  2. EXCEDRIN (MIGRAINE) [Suspect]
     Indication: PAIN
     Dosage: 4 DF AT A TIME, UP TO 20 DF A DAY
     Route: 048

REACTIONS (10)
  - OVERDOSE [None]
  - ADHESION [None]
  - GASTRIC ULCER [None]
  - INAPPROPRIATE SCHEDULE OF DRUG ADMINISTRATION [None]
  - GALLBLADDER DISORDER [None]
  - INCORRECT DOSE ADMINISTERED [None]
  - ARTHROPATHY [None]
  - WRONG TECHNIQUE IN DRUG USAGE PROCESS [None]
  - INCORRECT DRUG ADMINISTRATION DURATION [None]
  - GASTRIC HAEMORRHAGE [None]
